FAERS Safety Report 6224960-1 (Version None)
Quarter: 2009Q2

REPORT INFORMATION
  Report Type: 
  Country: None (occurrence: None)
  Receive Date: 20090612
  Receipt Date: 20090331
  Transmission Date: 20091009
  Serious: No
  Sender: FDA-Public Use
  Company Number: US-ABBOTT-09P-163-0566552-00

PATIENT
  Sex: Female

DRUGS (1)
  1. HUMIRA [Suspect]
     Indication: PSORIASIS
     Dosage: INITIAL DOSE OF 80 MG
     Route: 048
     Dates: start: 20090329

REACTIONS (3)
  - MALAISE [None]
  - TOOTH ABSCESS [None]
  - TOOTHACHE [None]
